FAERS Safety Report 6085390-9 (Version None)
Quarter: 2009Q1

REPORT INFORMATION
  Report Type: 
  Country: None (occurrence: None)
  Receive Date: 20090220
  Receipt Date: 20090211
  Transmission Date: 20090719
  Serious: Yes (Other)
  Sender: FDA-Public Use
  Company Number: AE-AMGEN-UK333127

PATIENT
  Sex: Female
  Weight: 67 kg

DRUGS (6)
  1. NEULASTIM [Suspect]
     Indication: CHEMOTHERAPY
     Route: 058
     Dates: start: 20081223
  2. NEULASTIM [Suspect]
     Route: 058
     Dates: start: 20090106
  3. ADRIAMYCIN PFS [Concomitant]
     Route: 065
     Dates: start: 20081222, end: 20081222
  4. ADRIAMYCIN PFS [Concomitant]
     Route: 065
     Dates: start: 20090105, end: 20090105
  5. CYTOXAN [Concomitant]
     Route: 065
     Dates: start: 20081222, end: 20081222
  6. CYTOXAN [Concomitant]
     Route: 065
     Dates: start: 20090105, end: 20090105

REACTIONS (1)
  - FEBRILE NEUTROPENIA [None]
